FAERS Safety Report 25028594 (Version 4)
Quarter: 2025Q1

REPORT INFORMATION
  Report Type: Spontaneous
  Country: DE (occurrence: DE)
  Receive Date: 20250302
  Receipt Date: 20250322
  Transmission Date: 20250408
  Serious: Yes (Death, Hospitalization, Other)
  Sender: AUROBINDO
  Company Number: DE-002147023-NVSC2025DE024731

PATIENT
  Sex: Female
  Weight: 86 kg

DRUGS (19)
  1. FULVESTRANT [Suspect]
     Active Substance: FULVESTRANT
     Indication: Hormone receptor positive HER2 negative breast cancer
     Dosage: 250 MILLIGRAM, ONCE A DAY (EVERY 2 WEEKS)
     Route: 058
     Dates: start: 20220916, end: 20221025
  2. LETROZOLE [Suspect]
     Active Substance: LETROZOLE
     Indication: Hormone receptor positive HER2 negative breast cancer
     Dosage: 2.5 MILLIGRAM, ONCE A DAY
     Route: 048
     Dates: start: 20190821, end: 20220915
  3. KISQALI [Suspect]
     Active Substance: RIBOCICLIB
     Indication: Hormone receptor positive HER2 negative breast cancer
     Dosage: 600 MILLIGRAM, ONCE A DAY (SCHEMA 21 DAYS INTAKE, 7 DAYS PAUSE)
     Route: 048
     Dates: start: 20190823, end: 20191127
  4. KISQALI [Suspect]
     Active Substance: RIBOCICLIB
     Dosage: 400 MILLIGRAM, ONCE A DAY (SCHEMA 21 DAYS INTAKE, 7 DAYS PAUSE)
     Route: 048
     Dates: start: 20191206, end: 20221025
  5. KISQALI [Suspect]
     Active Substance: RIBOCICLIB
     Route: 065
     Dates: start: 2020, end: 202301
  6. KISQALI [Suspect]
     Active Substance: RIBOCICLIB
     Route: 065
     Dates: start: 202408
  7. FASLODEX [Concomitant]
     Active Substance: FULVESTRANT
     Indication: Hormone receptor positive HER2 negative breast cancer
     Route: 065
  8. FASLODEX [Concomitant]
     Active Substance: FULVESTRANT
     Route: 065
  9. FASLODEX [Concomitant]
     Active Substance: FULVESTRANT
     Route: 058
     Dates: start: 202209, end: 20221025
  10. FASLODEX [Concomitant]
     Active Substance: FULVESTRANT
     Route: 065
  11. FASLODEX [Concomitant]
     Active Substance: FULVESTRANT
     Route: 065
     Dates: start: 20221026, end: 20250113
  12. XGEVA [Concomitant]
     Active Substance: DENOSUMAB
     Indication: Product used for unknown indication
     Route: 065
  13. XGEVA [Concomitant]
     Active Substance: DENOSUMAB
     Route: 058
     Dates: start: 20201006, end: 202501
  14. LEVOTHYROXINE [Concomitant]
     Active Substance: LEVOTHYROXINE
     Indication: Product used for unknown indication
     Route: 065
  15. LEVOTHYROXINE [Concomitant]
     Active Substance: LEVOTHYROXINE
     Dosage: 75 MICROGRAM, ONCE A DAY
     Route: 048
     Dates: start: 2000, end: 2005
  16. RAMIPRIL [Concomitant]
     Active Substance: RAMIPRIL
     Indication: Product used for unknown indication
     Route: 065
  17. RAMIPRIL [Concomitant]
     Active Substance: RAMIPRIL
     Route: 065
  18. RAMIPRIL [Concomitant]
     Active Substance: RAMIPRIL
     Dosage: UNK MG, QD
     Route: 048
     Dates: end: 2004
  19. RAMIPRIL [Concomitant]
     Active Substance: RAMIPRIL
     Route: 065

REACTIONS (11)
  - Hepatic failure [Fatal]
  - Tumour invasion [Fatal]
  - Jaundice [Fatal]
  - Chromaturia [Fatal]
  - Faeces discoloured [Fatal]
  - Nausea [Fatal]
  - Ascites [Fatal]
  - Fatigue [Fatal]
  - Muscle atrophy [Fatal]
  - Decreased appetite [Fatal]
  - Hyperbilirubinaemia [Not Recovered/Not Resolved]

NARRATIVE: CASE EVENT DATE: 20250107
